FAERS Safety Report 8373512-6 (Version None)
Quarter: 2012Q2

REPORT INFORMATION
  Report Type: 
  Country: None (occurrence: None)
  Receive Date: 20120521
  Receipt Date: 20120512
  Transmission Date: 20120825
  Serious: Yes (Other)
  Sender: FDA-Public Use
  Company Number: US-US-EMD SERONO, INC.-7132741

PATIENT
  Sex: Female

DRUGS (3)
  1. SYNTHROID [Concomitant]
     Indication: THYROID DISORDER
  2. REBIF [Suspect]
     Indication: MULTIPLE SCLEROSIS
     Route: 058
     Dates: start: 20041115
  3. CRESTOR [Concomitant]
     Indication: BLOOD CHOLESTEROL INCREASED

REACTIONS (7)
  - DIABETES MELLITUS [None]
  - INTERVERTEBRAL DISC PROTRUSION [None]
  - ASTHENIA [None]
  - HEPATIC ENZYME INCREASED [None]
  - PARAESTHESIA [None]
  - CENTRAL NERVOUS SYSTEM LESION [None]
  - OVARIAN FIBROMA [None]
